FAERS Safety Report 21148820 (Version 1)
Quarter: 2022Q3

REPORT INFORMATION
  Report Type: Spontaneous
  Country: TW (occurrence: TW)
  Receive Date: 20220729
  Receipt Date: 20220729
  Transmission Date: 20221027
  Serious: Yes (Other)
  Sender: FDA-Public Use
  Company Number: TW-PFIZER INC-PV202200030347

PATIENT
  Sex: Male

DRUGS (1)
  1. MEROPENEM [Suspect]
     Active Substance: MEROPENEM
     Indication: Bacillus infection
     Dosage: UNK
     Route: 065

REACTIONS (5)
  - Neonatal seizure [Unknown]
  - Encephalomalacia [Unknown]
  - Hydrocephalus [Unknown]
  - Blindness cortical [Unknown]
  - Cerebral ventricle dilatation [Unknown]
